FAERS Safety Report 8818066 (Version 1)
Quarter: 2012Q4

REPORT INFORMATION
  Report Type: 
  Country: US (occurrence: US)
  Receive Date: 20121002
  Receipt Date: 20121002
  Transmission Date: 20130627
  Serious: No
  Sender: FDA-Public Use
  Company Number: US-BAYER-2012-101854

PATIENT
  Age: 53 Year
  Sex: Male
  Weight: 77.1 kg

DRUGS (2)
  1. ALEVE CAPLET/TABLET,MIDOL EXTENDED RELIEF CAPLET [Suspect]
     Indication: MYALGIA
     Dosage: 2 DF, PRN
     Route: 048
     Dates: start: 20120923, end: 20120924
  2. ADVIL [Concomitant]

REACTIONS (2)
  - Myalgia [None]
  - No adverse event [None]
